FAERS Safety Report 5999991-7 (Version None)
Quarter: 2008Q4

REPORT INFORMATION
  Report Type: 
  Country: None (occurrence: None)
  Receive Date: 20081215
  Receipt Date: 20081208
  Transmission Date: 20090506
  Serious: Yes (Other)
  Sender: FDA-Public Use
  Company Number: US-JNJFOC-20081202094

PATIENT
  Age: 6 Year
  Sex: Female
  Weight: 31.3 kg

DRUGS (2)
  1. CHILDRENS TYLENOL PLUS COLD AND COUGH DYE FREE GRAPE [Suspect]
     Indication: NASOPHARYNGITIS
     Route: 048
  2. ALBUTEROL [Concomitant]
     Indication: ASTHMA
     Route: 055

REACTIONS (6)
  - HEADACHE [None]
  - HYPERSENSITIVITY [None]
  - PRODUCT TAMPERING [None]
  - RESPIRATORY RATE INCREASED [None]
  - SKIN DISORDER [None]
  - VOMITING [None]
